FAERS Safety Report 12631422 (Version 2)
Quarter: 2016Q3

REPORT INFORMATION
  Report Type: Spontaneous
  Country: US (occurrence: US)
  Receive Date: 20160808
  Receipt Date: 20160808
  Transmission Date: 20161109
  Serious: No
  Sender: FDA-Public Use
  Company Number: US-BEH-2015053825

PATIENT
  Sex: Female

DRUGS (1)
  1. HIZENTRA [Suspect]
     Active Substance: HUMAN IMMUNOGLOBULIN G
     Indication: PRODUCT USED FOR UNKNOWN INDICATION
     Dosage: INFUSED ONLY 5 ML
     Dates: start: 20150907

REACTIONS (3)
  - Infusion site haemorrhage [Unknown]
  - Infusion site bruising [Unknown]
  - Infusion site pain [Recovered/Resolved]

NARRATIVE: CASE EVENT DATE: 20150907
